FAERS Safety Report 8088019-3 (Version None)
Quarter: 2012Q1

REPORT INFORMATION
  Report Type: 
  Country: None (occurrence: None)
  Receive Date: 20120128
  Receipt Date: 20110612
  Transmission Date: 20120608
  Serious: No
  Sender: FDA-Public Use
  Company Number: US-ABBOTT-11P-163-0731788-00

PATIENT
  Age: 64 Year
  Sex: Male

DRUGS (3)
  1. PREDNISONE TAB [Concomitant]
     Indication: PRODUCT USED FOR UNKNOWN INDICATION
     Dosage: TAPERING DOSE
  2. AZATHIOPRINE [Concomitant]
     Indication: PRODUCT USED FOR UNKNOWN INDICATION
  3. HUMIRA [Suspect]
     Indication: COLITIS ULCERATIVE
     Route: 058
     Dates: start: 20110201

REACTIONS (3)
  - COLITIS ULCERATIVE [None]
  - FREQUENT BOWEL MOVEMENTS [None]
  - BOWEL MOVEMENT IRREGULARITY [None]
